FAERS Safety Report 10965276 (Version 3)
Quarter: 2015Q4

REPORT INFORMATION
  Report Type: Spontaneous
  Country: US (occurrence: US)
  Receive Date: 20150330
  Receipt Date: 20151027
  Transmission Date: 20160304
  Serious: Yes (Death, Hospitalization)
  Sender: FDA-Public Use
  Company Number: US-PFIZER INC-2015107006

PATIENT
  Age: 77 Year
  Sex: Female
  Weight: 73 kg

DRUGS (2)
  1. SUTENT [Suspect]
     Active Substance: SUNITINIB MALATE
     Indication: PANCREATIC CARCINOMA METASTATIC
     Dosage: 12.5 MG, CYCLIC (QD X 4 WEEKS THE OFF 2 ON)
     Dates: start: 20150205, end: 20150930
  2. SUTENT [Suspect]
     Active Substance: SUNITINIB MALATE
     Dosage: 12.5 MG, CYCLIC (QD X 4 WEEKS THE OFF 2 ON)
     Dates: start: 20150205, end: 20150930

REACTIONS (7)
  - Death [Fatal]
  - Dizziness [Unknown]
  - Haemorrhoidal haemorrhage [Unknown]
  - Disease progression [Unknown]
  - Pancreatic carcinoma metastatic [Unknown]
  - Gastrooesophageal reflux disease [Unknown]
  - Nausea [Unknown]

NARRATIVE: CASE EVENT DATE: 20150528
